FAERS Safety Report 8780917 (Version 3)
Quarter: 2012Q4

REPORT INFORMATION
  Report Type: 
  Country: ES (occurrence: ES)
  Receive Date: 20120913
  Receipt Date: 20120918
  Transmission Date: 20130627
  Serious: Yes (Hospitalization, Other)
  Sender: FDA-Public Use
  Company Number: ES-PFIZER INC-2012077260

PATIENT
  Age: 71 Year
  Sex: Male

DRUGS (13)
  1. TRANGOREX [Suspect]
     Indication: ARRHYTHMIA
     Dosage: 1/24 hours (no intake on Saturdays and Sundays)
     Route: 048
     Dates: start: 20021003
  2. TRANGOREX [Suspect]
     Indication: ARRHYTHMIA
     Dosage: UNK
     Route: 042
     Dates: start: 20020816, end: 20020816
  3. TRANGOREX [Suspect]
     Dosage: UNK
     Route: 042
     Dates: start: 20020902
  4. SINTROM [Concomitant]
     Dosage: 4 mg:/day, depending on the checks, (dosing might change)
     Dates: start: 20021003
  5. AXURA [Concomitant]
     Dosage: 20 mg, daily
     Dates: start: 2010
  6. ADIRO [Concomitant]
     Dosage: 100
  7. METFORMIN [Concomitant]
     Dosage: 850 mg, daily
  8. ENALAPRIL [Concomitant]
     Dosage: 5 mg, daily
  9. CRESTOR [Concomitant]
     Dosage: 10 mg, daily
  10. EUTIROX [Concomitant]
     Dosage: 50 mcg, UNK
  11. OMEPRAZOLE [Concomitant]
     Dosage: 1/24 hours; omeprazole 20
     Dates: start: 20021003
  12. IMIPENEM [Concomitant]
     Dosage: 1 g/ 12 hours; treatment during 21 days
     Dates: start: 20021003
  13. HALOPERIDOL [Concomitant]
     Dosage: 1 ampoule of agitation
     Dates: start: 20021003

REACTIONS (23)
  - Mental impairment [Not Recovered/Not Resolved]
  - Cardiogenic shock [Unknown]
  - Tachyarrhythmia [Unknown]
  - Pericardial effusion [Unknown]
  - Respiratory tract infection [Unknown]
  - Tachypnoea [Unknown]
  - Pancreatitis acute [Unknown]
  - Pancreatitis necrotising [Unknown]
  - Cholestasis [Unknown]
  - Encephalopathy [Unknown]
  - Leukocytosis [Unknown]
  - Oliguria [Unknown]
  - Disorientation [Unknown]
  - Agitation [Unknown]
  - Drug intolerance [Unknown]
  - Blood creatinine increased [Unknown]
  - Blood triglycerides increased [Unknown]
  - Amnesia [Unknown]
  - Appendicitis [Unknown]
  - Haematoma [Unknown]
  - Dementia Alzheimer^s type [Unknown]
  - Bradycardia [Unknown]
  - Erectile dysfunction [Unknown]
